FAERS Safety Report 9292506 (Version 1)
Quarter: 2013Q2

REPORT INFORMATION
  Report Type: Spontaneous
  Country: FR (occurrence: FR)
  Receive Date: 20130516
  Receipt Date: 20130516
  Transmission Date: 20140414
  Serious: Yes (Hospitalization)
  Sender: FDA-Public Use
  Company Number: FR-PFIZER INC-FR-WYE-H02334108

PATIENT
  Age: 75 Year
  Sex: Female

DRUGS (12)
  1. NOVATREX [Suspect]
     Indication: RHEUMATOID ARTHRITIS
     Dosage: 10 MG, WEEKLY
     Route: 048
     Dates: start: 2001, end: 20071124
  2. INIPOMP [Suspect]
     Dosage: 40 MG, 1X/DAY
     Route: 048
     Dates: end: 20071123
  3. AMAREL [Suspect]
     Indication: TYPE 2 DIABETES MELLITUS
     Dosage: 2 MG, 1X/DAY
     Route: 048
     Dates: end: 20071126
  4. AMAREL [Suspect]
     Dosage: 1 MG, 1X/DAY
     Route: 048
     Dates: start: 20071127
  5. FUCIDINE [Suspect]
     Indication: SKIN ULCER
     Dosage: 500 MG, 3X/DAY
     Route: 048
     Dates: start: 200711, end: 20071123
  6. CARTREX [Suspect]
     Indication: RHEUMATOID ARTHRITIS
     Dosage: 100.0 MG, 2X/DAY
     Route: 048
     Dates: end: 20071123
  7. GLUCOR [Concomitant]
     Route: 048
  8. MODUCREN [Concomitant]
     Route: 048
  9. APROVEL [Concomitant]
     Route: 048
  10. STAGID [Concomitant]
     Route: 048
  11. VOGALENE [Concomitant]
     Route: 048
  12. SKENAN [Concomitant]
     Route: 048

REACTIONS (8)
  - Pancytopenia [Recovering/Resolving]
  - Diabetic foot [Unknown]
  - Haemodilution [Unknown]
  - Ecchymosis [Unknown]
  - Haematoma [Unknown]
  - Fall [Unknown]
  - Hypoglycaemia [Unknown]
  - Oedema peripheral [Unknown]
